FAERS Safety Report 8187534-1 (Version None)
Quarter: 2012Q1

REPORT INFORMATION
  Report Type: 
  Country: None (occurrence: None)
  Receive Date: 20120221
  Receipt Date: 20101109
  Transmission Date: 20120608
  Serious: Yes (Hospitalization)
  Sender: FDA-Public Use
  Company Number: PHEH2010US03877

PATIENT
  Sex: Male

DRUGS (10)
  1. CETRIZINE (CETIRIZINE HYDROCHLORIDE) [Concomitant]
  2. TOBI [Suspect]
     Dosage: 300 MG, BID, INHALATION
     Route: 055
     Dates: start: 20100211
  3. PEG 3350 AND ELECTROLYTES (MACROGOL, POTASSIUM CHLORIDE, SODIUM BICARB [Concomitant]
  4. AZITHROMYCIN [Concomitant]
  5. CREON (AMYLASE, LIPASE, PANCREATIN, PROTEASE) [Concomitant]
  6. MEPHYTON (PHYTOMENADIONE) [Concomitant]
  7. ALBUTEROL [Concomitant]
  8. PULMOZYME [Concomitant]
  9. SPIRIVA [Concomitant]
  10. ADVAIR HFA [Concomitant]

REACTIONS (1)
  - MALAISE [None]
